FAERS Safety Report 9695736 (Version 1)
Quarter: 2013Q4

REPORT INFORMATION
  Report Type: Spontaneous
  Country: US (occurrence: None)
  Receive Date: 20131118
  Receipt Date: 20131118
  Transmission Date: 20140711
  Serious: Yes (Other)
  Sender: FDA-Public Use
  Company Number: None

PATIENT
  Age: 23 Year
  Sex: Female
  Weight: 79.38 kg

DRUGS (1)
  1. MIRENA [Suspect]
     Indication: CONTRACEPTION
     Dates: start: 20121030, end: 20131111

REACTIONS (6)
  - Muscle spasms [None]
  - Vaginal haemorrhage [None]
  - Migraine [None]
  - Pregnancy with contraceptive device [None]
  - Device related infection [None]
  - Exposure during pregnancy [None]
